FAERS Safety Report 19242233 (Version 1)
Quarter: 2021Q2

REPORT INFORMATION
  Report Type: Spontaneous
  Country: US (occurrence: US)
  Receive Date: 20210511
  Receipt Date: 20210511
  Transmission Date: 20210717
  Serious: Yes (Hospitalization)
  Sender: FDA-Public Use
  Company Number: None

PATIENT
  Age: 77 Year
  Sex: Male

DRUGS (1)
  1. ABIRATERONE TAB 250MG [Suspect]
     Active Substance: ABIRATERONE
     Route: 048
     Dates: start: 202103

REACTIONS (4)
  - Rib fracture [None]
  - Fall [None]
  - Blood pressure increased [None]
  - Oedema peripheral [None]

NARRATIVE: CASE EVENT DATE: 20210419
